FAERS Safety Report 5471222-6 (Version None)
Quarter: 2007Q3

REPORT INFORMATION
  Report Type: 
  Country: None (occurrence: None)
  Receive Date: 20070928
  Receipt Date: 20070917
  Transmission Date: 20080115
  Serious: No
  Sender: FDA-Public Use
  Company Number: A0677387A

PATIENT
  Age: 99 Year
  Sex: Female

DRUGS (8)
  1. FLOVENT [Suspect]
     Indication: DRUG USE FOR UNKNOWN INDICATION
     Dosage: 2PUFF TWICE PER DAY
     Route: 055
     Dates: start: 20051201
  2. COUMADIN [Concomitant]
  3. PEPCID [Concomitant]
  4. ATENOLOL [Concomitant]
  5. COMBIVENT [Concomitant]
  6. FLONASE [Concomitant]
  7. LASIX [Concomitant]
  8. LANOXIN [Concomitant]

REACTIONS (3)
  - DRUG INEFFECTIVE [None]
  - DYSPNOEA [None]
  - PHARMACEUTICAL PRODUCT COMPLAINT [None]
